FAERS Safety Report 21231003 (Version 2)
Quarter: 2022Q3

REPORT INFORMATION
  Report Type: Report from Study
  Country: US (occurrence: US)
  Receive Date: 20220819
  Receipt Date: 20220825
  Transmission Date: 20221027
  Serious: Yes (Hospitalization, Other)
  Sender: FDA-Public Use
  Company Number: US-AUROBINDO-AUR-APL-2022-032725

PATIENT
  Sex: Female

DRUGS (2)
  1. HYDROXYCHLOROQUINE [Suspect]
     Active Substance: HYDROXYCHLOROQUINE
     Indication: Alopecia scarring
     Dosage: 400 MILLIGRAM, ONCE A DAY
     Route: 065
  2. ESTRADIOL\NORETHINDRONE [Concomitant]
     Active Substance: ESTRADIOL\NORETHINDRONE
     Indication: Hormone replacement therapy
     Dosage: UNK
     Route: 065

REACTIONS (1)
  - Ventricular tachycardia [Recovered/Resolved]
